FAERS Safety Report 4988644-X (Version None)
Quarter: 2006Q2

REPORT INFORMATION
  Report Type: 
  Country: None (occurrence: None)
  Receive Date: 20060426
  Receipt Date: 20060410
  Transmission Date: 20061013
  Serious: Yes (Other)
  Sender: FDA-Public Use
  Company Number: DE200604002863

PATIENT
  Age: 68 Year
  Sex: Male

DRUGS (6)
  1. CYMBALTA [Suspect]
     Indication: DEPRESSIVE SYMPTOM
     Dosage: 30 MG, DAILY (1/D), ORAL
     Route: 048
     Dates: start: 20060407, end: 20060410
  2. DOXEPIN [Concomitant]
  3. LOCOL (FLUVASTATIN SODIUM) [Concomitant]
  4. ACETYLSALICYLIC ACID SRT [Concomitant]
  5. TEVETEEN /SCH/ (EPROSARTAN MESILATE) [Concomitant]
  6. SPASMEX (TROSPIUM CHLORIDE) [Concomitant]

REACTIONS (3)
  - AGITATION [None]
  - BLOOD PRESSURE INCREASED [None]
  - MALAISE [None]
